FAERS Safety Report 20591534 (Version 1)
Quarter: 2022Q1

REPORT INFORMATION
  Report Type: Spontaneous
  Country: US (occurrence: US)
  Receive Date: 20220314
  Receipt Date: 20220314
  Transmission Date: 20220423
  Serious: Yes (Other)
  Sender: FDA-Public Use
  Company Number: US-BioDelivery Sciences International-2022BDSI0061

PATIENT
  Age: 63 Year
  Sex: Male

DRUGS (6)
  1. BELBUCA [Suspect]
     Active Substance: BUPRENORPHINE HYDROCHLORIDE
     Indication: Pain
     Route: 002
     Dates: start: 202112, end: 202112
  2. BELBUCA [Suspect]
     Active Substance: BUPRENORPHINE HYDROCHLORIDE
     Dosage: TWO BELBUCA 150 MCG FILMS, TWICE DAILY
     Route: 002
     Dates: start: 202112, end: 20220212
  3. BELBUCA [Suspect]
     Active Substance: BUPRENORPHINE HYDROCHLORIDE
     Route: 002
     Dates: start: 20220213
  4. GABAPENTIN [Concomitant]
     Active Substance: GABAPENTIN
     Indication: Radiculopathy
     Dosage: UNKNOWN
     Route: 065
  5. GABAPENTIN [Concomitant]
     Active Substance: GABAPENTIN
     Indication: Neuropathy peripheral
     Dosage: UNKNOWN
     Route: 065
  6. GABAPENTIN [Concomitant]
     Active Substance: GABAPENTIN
     Dosage: AS NEEDED
     Route: 065

REACTIONS (3)
  - Drug withdrawal syndrome [Not Recovered/Not Resolved]
  - Drug ineffective [Unknown]
  - Therapeutic response decreased [Unknown]

NARRATIVE: CASE EVENT DATE: 20211201
